FAERS Safety Report 10801991 (Version 1)
Quarter: 2015Q1

REPORT INFORMATION
  Report Type: Spontaneous
  Country: CA (occurrence: CA)
  Receive Date: 20150217
  Receipt Date: 20150217
  Transmission Date: 20150721
  Serious: Yes (Other)
  Sender: FDA-Public Use
  Company Number: CA-AMGEN-CANSP2015013941

PATIENT
  Age: 53 Year
  Sex: Female

DRUGS (11)
  1. CYPROHEPTADINE. [Concomitant]
     Active Substance: CYPROHEPTADINE
  2. LIPIDIL [Concomitant]
     Active Substance: FENOFIBRATE
  3. AMITRIPTYLINE [Concomitant]
     Active Substance: AMITRIPTYLINE
  4. CEFPROZIL. [Concomitant]
     Active Substance: CEFPROZIL
  5. DEXILANT [Concomitant]
     Active Substance: DEXLANSOPRAZOLE
  6. BENAZEPRIL GENERIS [Concomitant]
  7. RIZATRIPTAN [Concomitant]
     Active Substance: RIZATRIPTAN
  8. ESTROGEL [Concomitant]
     Active Substance: ESTRADIOL
  9. PROLIA [Suspect]
     Active Substance: DENOSUMAB
     Indication: PRODUCT USED FOR UNKNOWN INDICATION
     Dosage: UNK, UNK
     Route: 065
     Dates: start: 201408
  10. AVAMYS [Concomitant]
     Active Substance: FLUTICASONE FUROATE
  11. PROMETRIUM [Concomitant]
     Active Substance: PROGESTERONE

REACTIONS (1)
  - Respiratory tract infection [Unknown]
